FAERS Safety Report 10104416 (Version 1)
Quarter: 2014Q2

REPORT INFORMATION
  Report Type: Spontaneous
  Country: US (occurrence: US)
  Receive Date: 20140424
  Receipt Date: 20140424
  Transmission Date: 20141212
  Serious: No
  Sender: FDA-Public Use
  Company Number: US-009507513-1404USA004280

PATIENT
  Sex: Female

DRUGS (2)
  1. CLARITIN ORAL SOLUTION [Suspect]
     Indication: ALLERGY TO ANIMAL
     Route: 048
  2. CLARITIN ORAL SOLUTION [Suspect]
     Indication: ALLERGY TO ANIMAL

REACTIONS (1)
  - Drug effect incomplete [Unknown]
